FAERS Safety Report 9649682 (Version 3)
Quarter: 2014Q1

REPORT INFORMATION
  Report Type: Report from Study
  Country: CA (occurrence: CA)
  Receive Date: 20131028
  Receipt Date: 20140101
  Transmission Date: 20141002
  Serious: Yes (Hospitalization, Other)
  Sender: FDA-Public Use
  Company Number: CA-ROCHE-1295072

PATIENT
  Age: 70 Year
  Sex: Female
  Weight: 78.5 kg

DRUGS (16)
  1. ACTEMRA [Suspect]
     Indication: RHEUMATOID ARTHRITIS
     Route: 042
     Dates: start: 20130625
  2. ACTEMRA [Suspect]
     Route: 042
     Dates: start: 20131223
  3. METHOTREXATE [Concomitant]
  4. LEUCOVORIN [Concomitant]
  5. PREDNISONE [Concomitant]
  6. PREGABALIN [Concomitant]
  7. BETAHISTINE [Concomitant]
  8. PANTOLOC [Concomitant]
  9. DOCUSATE [Concomitant]
  10. ORPHENADRINE [Concomitant]
  11. SENNOSIDES [Concomitant]
  12. CITALOPRAM [Concomitant]
  13. SYNTHROID [Concomitant]
  14. LYRICA [Concomitant]
  15. TRAZODONE [Concomitant]
  16. PULMICORT [Concomitant]

REACTIONS (4)
  - Spinal fracture [Unknown]
  - Fall [Unknown]
  - Vulvovaginal dryness [Recovering/Resolving]
  - Sinusitis [Recovered/Resolved]
